FAERS Safety Report 6155623-9 (Version None)
Quarter: 2009Q2

REPORT INFORMATION
  Report Type: 
  Country: None (occurrence: None)
  Receive Date: 20090415
  Receipt Date: 20090331
  Transmission Date: 20091009
  Serious: Yes (Other)
  Sender: FDA-Public Use
  Company Number: US-PFIZER INC-2009193729

PATIENT
  Sex: Female
  Weight: 72 kg

DRUGS (9)
  1. PROVERA [Suspect]
     Indication: HORMONE REPLACEMENT THERAPY
     Dosage: 10 MG, UNK
     Dates: start: 19940101, end: 19980201
  2. PROVERA [Suspect]
     Indication: MENOPAUSE
  3. PREMPRO [Suspect]
     Indication: HORMONE REPLACEMENT THERAPY
     Dosage: 625/2.5MG
     Dates: start: 20020101, end: 20021101
  4. PREMPRO [Suspect]
     Indication: MENOPAUSE
  5. MEDROXYPROGESTERONE [Suspect]
     Indication: HORMONE REPLACEMENT THERAPY
     Dosage: UNK
     Dates: start: 19980301, end: 20020101
  6. MEDROXYPROGESTERONE [Suspect]
     Indication: MENOPAUSE
  7. PREMARIN [Suspect]
     Indication: MENOPAUSE
     Dosage: 0.9 MG, UNK
     Dates: start: 19940101, end: 20020101
  8. ZIAC [Concomitant]
     Indication: HYPERTENSION
     Dosage: UNK
     Dates: start: 19990101
  9. METHOTREXATE [Concomitant]
     Indication: PSORIASIS
     Dosage: UNK
     Dates: start: 19950101

REACTIONS (1)
  - BREAST CANCER FEMALE [None]
